FAERS Safety Report 7944895-3 (Version None)
Quarter: 2011Q4

REPORT INFORMATION
  Report Type: 
  Country: None (occurrence: None)
  Receive Date: 20111129
  Receipt Date: 20111122
  Transmission Date: 20120403
  Serious: Yes (Other)
  Sender: FDA-Public Use
  Company Number: CH-SANOFI-AVENTIS-2011SA076926

PATIENT
  Age: 47 Year
  Sex: Female

DRUGS (6)
  1. TRAMADOL HYDROCHLORIDE [Concomitant]
  2. DANAZOL [Suspect]
     Indication: ENDOMETRIOSIS
     Route: 048
     Dates: start: 20101001, end: 20111111
  3. ALL OTHER THERAPEUTIC PRODUCTS [Concomitant]
  4. CALCIMAGON [Concomitant]
  5. FOSAMAX [Concomitant]
  6. LIVIAL [Concomitant]

REACTIONS (1)
  - HEPATOCELLULAR INJURY [None]
